FAERS Safety Report 4523081-3 (Version None)
Quarter: 2004Q4

REPORT INFORMATION
  Report Type: 
  Country: None (occurrence: None)
  Receive Date: 20041208
  Receipt Date: 20041125
  Transmission Date: 20050328
  Serious: Yes (Hospitalization)
  Sender: FDA-Public Use
  Company Number: 2004101525

PATIENT
  Sex: Male

DRUGS (5)
  1. NICORETTE [Suspect]
     Dosage: TRANSDERMAL
     Route: 062
  2. GLICLAZIDE 9GLICLAZIDE0 [Concomitant]
  3. ACARBOSE (ACARBOSE) [Concomitant]
  4. DILTIAZEM HYDROCHLORIDE [Concomitant]
  5. FENOFIBRATE [Concomitant]

REACTIONS (2)
  - CONDITION AGGRAVATED [None]
  - DIABETES MELLITUS [None]
